FAERS Safety Report 9236110 (Version 1)
Quarter: 2013Q2

REPORT INFORMATION
  Report Type: Spontaneous
  Country: US (occurrence: None)
  Receive Date: 20130416
  Receipt Date: 20130416
  Transmission Date: 20140414
  Serious: Yes (Hospitalization)
  Sender: FDA-Public Use
  Company Number: None

PATIENT
  Age: 62 Year
  Sex: Female
  Weight: 70.5 kg

DRUGS (10)
  1. HUMALOG [Suspect]
     Indication: DIABETES MELLITUS
     Dosage: AC+ HS
     Route: 058
     Dates: start: 20120909, end: 20121009
  2. ALBUTEROL [Concomitant]
  3. DEXAMETHASONE [Concomitant]
  4. HYDRALAZINE [Concomitant]
  5. ASPIRIN [Concomitant]
  6. LABETOLOL [Concomitant]
  7. PREVACID [Concomitant]
  8. REGLAN [Concomitant]
  9. LANTUS INSULIN [Concomitant]
  10. CATAPRESS TTS [Concomitant]

REACTIONS (2)
  - Blood glucose decreased [None]
  - Altered state of consciousness [None]
